FAERS Safety Report 6235438-3 (Version None)
Quarter: 2009Q2

REPORT INFORMATION
  Report Type: 
  Country: None (occurrence: None)
  Receive Date: 20090618
  Receipt Date: 20090302
  Transmission Date: 20091009
  Serious: No
  Sender: FDA-Public Use
  Company Number: US-ASTRAZENECA-2009UW05624

PATIENT
  Sex: Female

DRUGS (1)
  1. RHINOCORT [Suspect]
     Dosage: 1 SPRAY AT EACH NARE
     Route: 045
     Dates: end: 20090225

REACTIONS (3)
  - CONDITION AGGRAVATED [None]
  - RHINORRHOEA [None]
  - SNEEZING [None]
